FAERS Safety Report 5265491-5 (Version None)
Quarter: 2007Q1

REPORT INFORMATION
  Report Type: 
  Country: None (occurrence: None)
  Receive Date: 20070314
  Receipt Date: 20070312
  Transmission Date: 20070707
  Serious: Yes (Death)
  Sender: FDA-Public Use
  Company Number: GB-BOEHRINGER INGELHEIM GMBH, GERMANY-2006-UK-02022UK

PATIENT
  Age: 52 Year
  Sex: Male

DRUGS (6)
  1. VIRAMUNE [Suspect]
     Indication: HIV INFECTION
     Route: 065
     Dates: start: 20001101
  2. LAMIVUDINE [Suspect]
     Indication: HIV INFECTION
     Route: 065
     Dates: start: 20001101
  3. ABACAVIR [Suspect]
     Indication: HIV INFECTION
     Route: 065
     Dates: start: 20001101
  4. LOPINAVIR [Suspect]
     Indication: HIV INFECTION
     Dosage: 8 TABLETS
     Route: 065
     Dates: start: 20001101
  5. AMPRENAVIR [Suspect]
     Indication: HIV INFECTION
     Route: 065
     Dates: start: 20001101
  6. KALETRA [Suspect]
     Indication: RETROVIRAL INFECTION
     Dates: start: 20001101

REACTIONS (9)
  - AGITATION [None]
  - BRAIN DAMAGE [None]
  - CD4 LYMPHOCYTES INCREASED [None]
  - COGNITIVE DISORDER [None]
  - IMMUNE SYSTEM DISORDER [None]
  - INCONTINENCE [None]
  - LEUKOENCEPHALOPATHY [None]
  - MENTAL DISORDER [None]
  - PARKINSONISM [None]
